FAERS Safety Report 7013577-7 (Version None)
Quarter: 2010Q3

REPORT INFORMATION
  Report Type: 
  Country: None (occurrence: None)
  Receive Date: 20100924
  Receipt Date: 20100914
  Transmission Date: 20110219
  Serious: Yes (Hospitalization, Other)
  Sender: FDA-Public Use
  Company Number: PHHY2010BE60389

PATIENT
  Age: 33 Year
  Sex: Male

DRUGS (8)
  1. ACLASTA [Suspect]
     Indication: OSTEOPOROSIS
     Dosage: 5 MG
     Route: 042
     Dates: start: 20100706
  2. MEDROL [Concomitant]
  3. METHOTREXATE [Concomitant]
     Dosage: 10 MG /WEEK
  4. PLAQUENIL [Concomitant]
  5. ZANTAC [Concomitant]
  6. KIVEXA [Concomitant]
  7. EFAVIRENZ [Concomitant]
  8. FOLIC ACID [Concomitant]

REACTIONS (2)
  - HYPERCALCAEMIA [None]
  - SARCOIDOSIS [None]
